FAERS Safety Report 10365211 (Version 1)
Quarter: 2014Q3

REPORT INFORMATION
  Report Type: Spontaneous
  Country: US (occurrence: None)
  Receive Date: 20140804
  Receipt Date: 20140804
  Transmission Date: 20150326
  Serious: Yes (Life-Threatening, Hospitalization, Disabling, Other)
  Sender: FDA-Public Use
  Company Number: None

PATIENT
  Age: 71 Year
  Sex: Male
  Weight: 122.47 kg

DRUGS (1)
  1. BENZATROPHENE BENZATROPHENE 5 G [Suspect]
     Active Substance: BENZTROPINE
     Indication: PARKINSON^S DISEASE
     Dates: start: 20140717

REACTIONS (5)
  - Fear [None]
  - Heart rate increased [None]
  - Hallucination, visual [None]
  - Aggression [None]
  - Myocardial infarction [None]

NARRATIVE: CASE EVENT DATE: 20140801
